FAERS Safety Report 10480240 (Version 1)
Quarter: 2014Q3

REPORT INFORMATION
  Report Type: Spontaneous
  Country: US (occurrence: US)
  Receive Date: 20140929
  Receipt Date: 20140929
  Transmission Date: 20150326
  Serious: Yes (Hospitalization, Other)
  Sender: FDA-Public Use
  Company Number: US-JNJFOC-20140914415

PATIENT

DRUGS (3)
  1. IBUPROFEN. [Suspect]
     Active Substance: IBUPROFEN
     Indication: PROCEDURAL PAIN
     Dosage: 10MG/KG/DOSE EVERY 6 HOURS
     Route: 065
  2. OPIOIDS [Suspect]
     Active Substance: UNSPECIFIED INGREDIENT
     Indication: PROCEDURAL PAIN
     Dosage: 0.05 TO 0.15MG/KG/DOSE EVERY 4 TO 6 HOURS
     Route: 065
  3. ACETAMINOPHEN. [Suspect]
     Active Substance: ACETAMINOPHEN
     Indication: PROCEDURAL PAIN
     Dosage: 15MG/KG/DOSE EVERY 4 HOURS
     Route: 065

REACTIONS (2)
  - Haemorrhage [Unknown]
  - Drug ineffective [Unknown]
